FAERS Safety Report 16334261 (Version 1)
Quarter: 2019Q2

REPORT INFORMATION
  Report Type: Spontaneous
  Country: KR (occurrence: KR)
  Receive Date: 20190520
  Receipt Date: 20190520
  Transmission Date: 20190711
  Serious: Yes (Other)
  Sender: FDA-Public Use
  Company Number: KR-ANIPHARMA-2019-KR-000019

PATIENT
  Age: 55 Year
  Sex: Male

DRUGS (6)
  1. TIANEPTINE [Suspect]
     Active Substance: TIANEPTINE
     Indication: REHABILITATION THERAPY
     Dosage: 37.5 MG DAILY
  2. VENLAFAXINE [Suspect]
     Active Substance: VENLAFAXINE HYDROCHLORIDE
     Indication: REHABILITATION THERAPY
     Dosage: 75 MG DAILY
  3. CARBIDOPA AND LEVODOPA (NON-SPECIFIC) [Suspect]
     Active Substance: CARBIDOPA\LEVODOPA
     Indication: REHABILITATION THERAPY
     Dosage: 750/75 MG DAILY
  4. BROMOCRIPTINE [Suspect]
     Active Substance: BROMOCRIPTINE
     Indication: REHABILITATION THERAPY
     Dosage: 7.5 MG DAILY
  5. ROPINIROLE. [Suspect]
     Active Substance: ROPINIROLE
     Indication: REHABILITATION THERAPY
     Dosage: 1.5 MG DAILY
  6. METHYLPHENIDATE HYDROCHLORIDE EXTENDED-RELEASE TABLETS USP (NON-SPECIF [Suspect]
     Active Substance: METHYLPHENIDATE HYDROCHLORIDE
     Indication: REHABILITATION THERAPY
     Dosage: 7.5 MG DAILY

REACTIONS (2)
  - Stress cardiomyopathy [Unknown]
  - Serotonin syndrome [Unknown]
